FAERS Safety Report 16050541 (Version 2)
Quarter: 2019Q1

REPORT INFORMATION
  Report Type: Spontaneous
  Country: US (occurrence: US)
  Receive Date: 20190308
  Receipt Date: 20190310
  Transmission Date: 20190418
  Serious: No
  Sender: FDA-Public Use
  Company Number: US-JNJFOC-20190229447

PATIENT

DRUGS (2)
  1. ILARIS [Concomitant]
     Active Substance: CANAKINUMAB
     Route: 065
  2. REMICADE [Suspect]
     Active Substance: INFLIXIMAB
     Indication: COLITIS ULCERATIVE
     Route: 042
     Dates: start: 20180510, end: 20180706

REACTIONS (1)
  - Drug ineffective [Unknown]
